FAERS Safety Report 21171880 (Version 1)
Quarter: 2022Q3

REPORT INFORMATION
  Report Type: Spontaneous
  Country: TW (occurrence: TW)
  Receive Date: 20220804
  Receipt Date: 20220804
  Transmission Date: 20221027
  Serious: Yes (Death, Other)
  Sender: FDA-Public Use
  Company Number: TW-BAYER-2022A108416

PATIENT
  Age: 54 Year
  Sex: Male

DRUGS (4)
  1. STIVARGA [Suspect]
     Active Substance: REGORAFENIB
     Indication: Adenocarcinoma of colon
     Dosage: 2 DF, QD
     Route: 048
     Dates: start: 20150914
  2. STIVARGA [Suspect]
     Active Substance: REGORAFENIB
     Indication: Metastases to bone
     Dosage: 3 DF, QD
     Route: 048
  3. STIVARGA [Suspect]
     Active Substance: REGORAFENIB
     Indication: Metastases to liver
  4. STIVARGA [Suspect]
     Active Substance: REGORAFENIB
     Indication: Metastases to lung

REACTIONS (6)
  - Death [Fatal]
  - Metastases to liver [None]
  - Metastases to bone [None]
  - Off label use [None]
  - Back pain [None]
  - Jaundice cholestatic [None]

NARRATIVE: CASE EVENT DATE: 20150914
